FAERS Safety Report 12447598 (Version 1)
Quarter: 2016Q2

REPORT INFORMATION
  Report Type: Spontaneous
  Country: US (occurrence: US)
  Receive Date: 20160608
  Receipt Date: 20160608
  Transmission Date: 20160815
  Serious: No
  Sender: FDA-Public Use
  Company Number: US-BAYER-2016-109873

PATIENT
  Age: 88 Year
  Sex: Male
  Weight: 68.27 kg

DRUGS (1)
  1. ALEVE [Suspect]
     Active Substance: NAPROXEN SODIUM
     Indication: BACK PAIN
     Dosage: 4 DF, QD EVERY 2 TO 4 HOURS
     Route: 048

REACTIONS (1)
  - Product use issue [None]
